FAERS Safety Report 10374773 (Version 1)
Quarter: 2014Q1

REPORT INFORMATION
  Report Type: Spontaneous
  Country: US (occurrence: None)
  Receive Date: 20140306
  Receipt Date: 20140306
  Transmission Date: 20141002
  Serious: Yes (Hospitalization)
  Sender: FDA-Public Use
  Company Number: 163-21880-13063332

PATIENT
  Age: 62 Year
  Sex: Male
  Weight: 116.58 kg

DRUGS (11)
  1. REVLIMID (LENALIDOMIDE) (25 MILLIGRAMS, CAPSULES) [Suspect]
     Indication: PLASMA CELL MYELOMA
     Route: 048
     Dates: start: 20111011
  2. HUMALOG (INSULIN LISPRO) [Concomitant]
  3. SENOKOT (SENNA FRUIT) (TABLETS) [Concomitant]
  4. NEURONTIN (GABAPENTIN) (CAPSULES) [Concomitant]
  5. LANTUS (INSULIN GLARGINE) [Concomitant]
  6. PRAVASTATIN SODIUM [Concomitant]
  7. NYSTATIN [Concomitant]
  8. NEXIUM (ESOMEPRAZOLE) [Concomitant]
  9. KLOR-CON (POTASSIUM CHLORIDE) [Concomitant]
  10. OXYCODONE HCL [Concomitant]
  11. MIRALAX (MACROGOL) (POWDER) [Concomitant]

REACTIONS (3)
  - Hypothyroidism [None]
  - Pharyngeal oedema [None]
  - Swollen tongue [None]
